FAERS Safety Report 8354199-5 (Version None)
Quarter: 2012Q2

REPORT INFORMATION
  Report Type: 
  Country: None (occurrence: None)
  Receive Date: 20120511
  Receipt Date: 20120508
  Transmission Date: 20120825
  Serious: Yes (Other)
  Sender: FDA-Public Use
  Company Number: PHHY2012AU039365

PATIENT
  Age: 50 Year
  Sex: Male

DRUGS (5)
  1. OXALIPLATIN [Suspect]
     Indication: COLON CANCER METASTATIC
     Dosage: 130 MG/M2, UNK
     Route: 042
  2. BEVACIZUMAB [Suspect]
     Indication: COLON CANCER METASTATIC
     Dosage: 7.5 MG/KG, UNK
     Route: 042
  3. ONDANSETRON [Concomitant]
     Indication: ANTIEMETIC SUPPORTIVE CARE
  4. CAPECITABINE [Suspect]
     Indication: COLON CANCER METASTATIC
     Dosage: 1000 MG/M2, BID
     Route: 048
  5. DEXAMETHASONE [Concomitant]
     Indication: ANTIEMETIC SUPPORTIVE CARE

REACTIONS (9)
  - RETINAL VASCULAR DISORDER [None]
  - MACULAR OEDEMA [None]
  - VISION BLURRED [None]
  - PUPILLARY REFLEX IMPAIRED [None]
  - VISUAL ACUITY REDUCED [None]
  - RETINAL HAEMORRHAGE [None]
  - RETINAL VEIN THROMBOSIS [None]
  - BLINDNESS [None]
  - PAPILLOEDEMA [None]
